FAERS Safety Report 9462947 (Version 2)
Quarter: 2013Q3

REPORT INFORMATION
  Report Type: Spontaneous
  Country: US (occurrence: US)
  Receive Date: 20130816
  Receipt Date: 20130913
  Transmission Date: 20140515
  Serious: No
  Sender: FDA-Public Use
  Company Number: US-TEVA-423417USA

PATIENT
  Age: 52 Year
  Sex: Male

DRUGS (2)
  1. QNASL [Suspect]
     Indication: RHINITIS ALLERGIC
     Route: 055
     Dates: start: 2013, end: 2013
  2. QNASL [Suspect]
     Route: 055
     Dates: start: 2013

REACTIONS (3)
  - Nasal septum ulceration [Recovered/Resolved]
  - Pain [Recovered/Resolved]
  - Scab [Recovered/Resolved]
